FAERS Safety Report 14238833 (Version 1)
Quarter: 2017Q4

REPORT INFORMATION
  Report Type: Spontaneous
  Country: US (occurrence: None)
  Receive Date: 20171129
  Receipt Date: 20171129
  Transmission Date: 20180321
  Serious: No
  Sender: FDA-Public Use
  Company Number: None

PATIENT
  Sex: Female

DRUGS (2)
  1. ENBREL [Suspect]
     Active Substance: ETANERCEPT
     Indication: RHEUMATOID ARTHRITIS
     Route: 058
     Dates: start: 201404
  2. METHOTREXATE 50MG/2ML [Suspect]
     Active Substance: METHOTREXATE
     Route: 058
     Dates: start: 201404

REACTIONS (2)
  - Nausea [None]
  - Oropharyngeal pain [None]
